FAERS Safety Report 25153658 (Version 1)
Quarter: 2025Q2

REPORT INFORMATION
  Report Type: Spontaneous
  Country: CN (occurrence: CN)
  Receive Date: 20250403
  Receipt Date: 20250403
  Transmission Date: 20250716
  Serious: Yes (Other)
  Sender: ROCHE
  Company Number: CN-ROCHE-10000248413

PATIENT
  Age: 52 Year
  Sex: Female
  Weight: 66 kg

DRUGS (20)
  1. PERTUZUMAB [Suspect]
     Active Substance: PERTUZUMAB
     Indication: Breast cancer
     Route: 042
     Dates: start: 20250207, end: 20250207
  2. PERTUZUMAB [Suspect]
     Active Substance: PERTUZUMAB
     Indication: Neoplasm malignant
  3. PERTUZUMAB [Suspect]
     Active Substance: PERTUZUMAB
     Indication: Neoplasm malignant
  4. PERTUZUMAB [Suspect]
     Active Substance: PERTUZUMAB
     Indication: Hepatic failure
  5. PERTUZUMAB [Suspect]
     Active Substance: PERTUZUMAB
     Indication: Myelosuppression
  6. TRASTUZUMAB [Suspect]
     Active Substance: TRASTUZUMAB
     Indication: Breast cancer
     Route: 042
     Dates: start: 20250207, end: 20250207
  7. TRASTUZUMAB [Suspect]
     Active Substance: TRASTUZUMAB
     Indication: Myelosuppression
  8. TRASTUZUMAB [Suspect]
     Active Substance: TRASTUZUMAB
     Indication: Hepatic failure
  9. TRASTUZUMAB [Suspect]
     Active Substance: TRASTUZUMAB
     Indication: Neoplasm malignant
  10. TRASTUZUMAB [Suspect]
     Active Substance: TRASTUZUMAB
     Indication: Neoplasm malignant
  11. CARBOPLATIN [Suspect]
     Active Substance: CARBOPLATIN
     Indication: Breast cancer
     Route: 042
     Dates: start: 20250207, end: 20250207
  12. CARBOPLATIN [Suspect]
     Active Substance: CARBOPLATIN
     Indication: Neoplasm malignant
  13. CARBOPLATIN [Suspect]
     Active Substance: CARBOPLATIN
     Indication: Neoplasm malignant
  14. CARBOPLATIN [Suspect]
     Active Substance: CARBOPLATIN
     Indication: Hepatic failure
  15. CARBOPLATIN [Suspect]
     Active Substance: CARBOPLATIN
     Indication: Myelosuppression
  16. PACLITAXEL [Suspect]
     Active Substance: PACLITAXEL
     Indication: Breast cancer
     Route: 042
     Dates: start: 20250207, end: 20250207
  17. PACLITAXEL [Suspect]
     Active Substance: PACLITAXEL
     Indication: Neoplasm malignant
  18. PACLITAXEL [Suspect]
     Active Substance: PACLITAXEL
     Indication: Neoplasm malignant
  19. PACLITAXEL [Suspect]
     Active Substance: PACLITAXEL
     Indication: Hepatic failure
  20. PACLITAXEL [Suspect]
     Active Substance: PACLITAXEL
     Indication: Myelosuppression

REACTIONS (1)
  - Platelet count decreased [Recovering/Resolving]

NARRATIVE: CASE EVENT DATE: 20250227
